FAERS Safety Report 25237206 (Version 1)
Quarter: 2025Q2

REPORT INFORMATION
  Report Type: Spontaneous
  Country: DE (occurrence: DE)
  Receive Date: 20250425
  Receipt Date: 20250425
  Transmission Date: 20250716
  Serious: Yes (Congenital Anomaly)
  Sender: ABBVIE
  Company Number: DE-EMB-M201813024-1

PATIENT
  Sex: Male
  Weight: 3 kg

DRUGS (2)
  1. MESALAMINE [Suspect]
     Active Substance: MESALAMINE
     Indication: Maternal exposure timing unspecified
     Route: 064
  2. SERTRALINE [Suspect]
     Active Substance: SERTRALINE HYDROCHLORIDE
     Indication: Maternal exposure timing unspecified
     Route: 064

REACTIONS (2)
  - Congenital monorchidism [Not Recovered/Not Resolved]
  - Foetal exposure during pregnancy [Unknown]
